FAERS Safety Report 25507873 (Version 1)
Quarter: 2025Q3

REPORT INFORMATION
  Report Type: Spontaneous
  Country: EU (occurrence: EU)
  Receive Date: 20250703
  Receipt Date: 20250703
  Transmission Date: 20251020
  Serious: Yes (Other)
  Sender: ASTELLAS
  Company Number: EU-ASTELLAS-2022US004689

PATIENT
  Age: 69 Year
  Sex: Male

DRUGS (2)
  1. ENZALUTAMIDE [Suspect]
     Active Substance: ENZALUTAMIDE
     Indication: Prostate cancer
     Dosage: 160 MG (4 CAPSULES PER DAY), ONCE DAILY
     Route: 048
     Dates: start: 202008
  2. ZOLEDRONIC ACID [Concomitant]
     Active Substance: ZOLEDRONIC ACID
     Indication: Product used for unknown indication
     Route: 065
     Dates: start: 202008

REACTIONS (8)
  - Malignant neoplasm progression [Unknown]
  - Prostatic specific antigen abnormal [Recovering/Resolving]
  - Spinal stenosis [Unknown]
  - Chest pain [Recovering/Resolving]
  - Intervertebral disc compression [Unknown]
  - Intervertebral disc degeneration [Unknown]
  - Hot flush [Unknown]
  - Weight increased [Unknown]

NARRATIVE: CASE EVENT DATE: 20200901
